FAERS Safety Report 17665404 (Version 5)
Quarter: 2020Q2

REPORT INFORMATION
  Report Type: Spontaneous
  Country: AU (occurrence: AU)
  Receive Date: 20200414
  Receipt Date: 20200527
  Transmission Date: 20200713
  Serious: Yes (Other)
  Sender: FDA-Public Use
  Company Number: AU-GLAXOSMITHKLINE-AU2020APC060928

PATIENT

DRUGS (2)
  1. ASMOL (SALBUTAMOL SULPHATE) [Suspect]
     Active Substance: ALBUTEROL SULFATE
     Indication: DYSPNOEA
     Dosage: UNK
  2. ASMOL (SALBUTAMOL SULPHATE) [Suspect]
     Active Substance: ALBUTEROL SULFATE
     Dosage: UNK

REACTIONS (5)
  - Product complaint [Unknown]
  - Device failure [Unknown]
  - Asthma [Unknown]
  - Product cleaning inadequate [Unknown]
  - Product dose omission [Unknown]
